FAERS Safety Report 11553243 (Version 3)
Quarter: 2015Q4

REPORT INFORMATION
  Report Type: Spontaneous
  Country: IT (occurrence: IT)
  Receive Date: 20150925
  Receipt Date: 20151126
  Transmission Date: 20160304
  Serious: Yes (Other)
  Sender: FDA-Public Use
  Company Number: IT-RECORDATI RARE DISEASES-IT-R13005-15-00147

PATIENT
  Age: 60 Year
  Sex: Female

DRUGS (7)
  1. COSMEGEN [Suspect]
     Active Substance: DACTINOMYCIN
     Indication: ACUTE MYELOID LEUKAEMIA
     Route: 042
     Dates: start: 20140408, end: 20140412
  2. COSMEGEN [Suspect]
     Active Substance: DACTINOMYCIN
     Route: 042
     Dates: start: 20140624, end: 20140628
  3. COSMEGEN [Suspect]
     Active Substance: DACTINOMYCIN
     Route: 042
     Dates: start: 20140728, end: 20140801
  4. COSMEGEN [Suspect]
     Active Substance: DACTINOMYCIN
     Route: 042
     Dates: start: 20140513, end: 20140517
  5. CARDIOLOGIC THERAPY [Concomitant]
     Indication: CARDIAC DISORDER
     Route: 065
  6. COSMEGEN [Suspect]
     Active Substance: DACTINOMYCIN
     Route: 042
     Dates: start: 20140901, end: 20140905
  7. COSMEGEN [Suspect]
     Active Substance: DACTINOMYCIN
     Route: 042
     Dates: start: 20141009, end: 20141013

REACTIONS (8)
  - Off label use [Recovered/Resolved]
  - Stomatitis [Recovered/Resolved]
  - Skin erosion [Recovered/Resolved]
  - Thrombocytopenia [Recovered/Resolved]
  - Haemoglobin decreased [Recovered/Resolved]
  - Febrile neutropenia [Recovered/Resolved]
  - Neutropenia [Recovered/Resolved]
  - Haematotoxicity [None]

NARRATIVE: CASE EVENT DATE: 20140408
